FAERS Safety Report 9736488 (Version 5)
Quarter: 2014Q1

REPORT INFORMATION
  Report Type: Spontaneous
  Country: AR (occurrence: AR)
  Receive Date: 20131206
  Receipt Date: 20140305
  Transmission Date: 20141002
  Serious: Yes (Hospitalization)
  Sender: FDA-Public Use
  Company Number: AR-AMGEN-ARGSP2013085581

PATIENT
  Age: 62 Year
  Sex: Female

DRUGS (6)
  1. ENBREL [Suspect]
     Indication: RHEUMATOID ARTHRITIS
     Dosage: 50 MG, WEEKLY
     Route: 065
     Dates: start: 20090722
  2. METHOTREXATE [Concomitant]
     Dosage: 5 MG, WEEKLY
  3. DELTISONA B                        /00049601/ [Concomitant]
     Dosage: 4 MG, 1X/DAY
  4. OMEPRAZOLE [Concomitant]
     Dosage: UNK
  5. ALPLAX [Concomitant]
     Indication: DEPRESSION
     Dosage: 1 MG, 1X/DAY
  6. ENALAPRIL [Concomitant]
     Indication: HYPERTENSION
     Dosage: UNK

REACTIONS (6)
  - Gait disturbance [Recovering/Resolving]
  - Abdominal discomfort [Recovering/Resolving]
  - Synovial cyst [Not Recovered/Not Resolved]
  - Back pain [Recovering/Resolving]
  - Fracture [Unknown]
  - Nodule [Unknown]
